FAERS Safety Report 4944986-5 (Version None)
Quarter: 2006Q1

REPORT INFORMATION
  Report Type: 
  Country: None (occurrence: None)
  Receive Date: 20060117
  Receipt Date: 20050509
  Transmission Date: 20060701
  Serious: Yes (Hospitalization)
  Sender: FDA-Public Use
  Company Number: A03200501395

PATIENT
  Age: 79 Year
  Sex: Male

DRUGS (13)
  1. PLAVIX [Suspect]
     Indication: TRANSIENT ISCHAEMIC ATTACK
     Dosage: 75 MG QD - ORAL
     Route: 048
     Dates: start: 20050127, end: 20050507
  2. PLAVIX [Suspect]
     Indication: TRANSIENT ISCHAEMIC ATTACK
     Dosage: 75 MG QD - ORAL
     Route: 048
     Dates: start: 20050602
  3. POTASSIUM [Concomitant]
  4. LORAZEPAM [Concomitant]
  5. ACETYLCYSTEINE [Concomitant]
  6. FOLIC ACID [Concomitant]
  7. OMEPRAZOLE [Concomitant]
  8. AMLODIPINE BESYLATE [Concomitant]
  9. MONTELUKAST SODIUM [Concomitant]
  10. TRIAMPTERINE+HYDROCHLORIDE [Concomitant]
  11. PRAVASTATIN SODIUM [Concomitant]
  12. FLUTICASONE PROPIONATE+SALMETEROL [Concomitant]
  13. ALBUTEROL [Concomitant]

REACTIONS (1)
  - PLATELET COUNT DECREASED [None]
